FAERS Safety Report 24614838 (Version 1)
Quarter: 2024Q4

REPORT INFORMATION
  Report Type: Spontaneous
  Country: US (occurrence: US)
  Receive Date: 20241113
  Receipt Date: 20241113
  Transmission Date: 20250114
  Serious: No
  Sender: MERCK
  Company Number: US-009507513-2411USA000146

PATIENT
  Sex: Male

DRUGS (4)
  1. KEYTRUDA [Suspect]
     Active Substance: PEMBROLIZUMAB
     Indication: Malignant melanoma
     Dosage: 200 MILLIGRAM, Q3W
     Dates: start: 202311
  2. NYSTATIN [Concomitant]
     Active Substance: NYSTATIN
  3. TAMSULOSIN [Concomitant]
     Active Substance: TAMSULOSIN
  4. CYANOCOBALAMIN\PYRIDOXINE\THIAMINE [Concomitant]
     Active Substance: CYANOCOBALAMIN\PYRIDOXINE\THIAMINE

REACTIONS (7)
  - Visual field defect [Recovering/Resolving]
  - Fatigue [Recovering/Resolving]
  - Dyspnoea [Recovering/Resolving]
  - Dizziness [Recovering/Resolving]
  - Constipation [Recovering/Resolving]
  - Arthralgia [Recovering/Resolving]
  - Hypertension [Recovering/Resolving]

NARRATIVE: CASE EVENT DATE: 20230101
